FAERS Safety Report 24383130 (Version 2)
Quarter: 2024Q4

REPORT INFORMATION
  Report Type: Spontaneous
  Country: US (occurrence: US)
  Receive Date: 20241001
  Receipt Date: 20241001
  Transmission Date: 20250115
  Serious: Yes (Hospitalization)
  Sender: GILEAD
  Company Number: US-GILEAD-2024-0689288

PATIENT
  Age: 70 Year
  Sex: Male

DRUGS (1)
  1. VEKLURY [Suspect]
     Active Substance: REMDESIVIR
     Indication: Coronavirus infection
     Dosage: UNK
     Route: 065
     Dates: start: 20240915

REACTIONS (3)
  - Malaise [Unknown]
  - Peripheral swelling [Unknown]
  - Recalled product administered [Unknown]
